FAERS Safety Report 8515520-8 (Version None)
Quarter: 2012Q3

REPORT INFORMATION
  Report Type: 
  Country: None (occurrence: None)
  Receive Date: 20120717
  Receipt Date: 20120711
  Transmission Date: 20120928
  Serious: Yes (Death)
  Sender: FDA-Public Use
  Company Number: US-TEVA-348132USA

PATIENT
  Sex: Female

DRUGS (1)
  1. ACTIQ [Suspect]
     Indication: CANCER PAIN
     Route: 002
     Dates: start: 20120628

REACTIONS (1)
  - NEOPLASM MALIGNANT [None]
